FAERS Safety Report 15751917 (Version 1)
Quarter: 2018Q4

REPORT INFORMATION
  Report Type: Spontaneous
  Country: GB (occurrence: FR)
  Receive Date: 20181221
  Receipt Date: 20181221
  Transmission Date: 20190205
  Serious: Yes (Hospitalization)
  Sender: FDA-Public Use
  Company Number: FR-FRESENIUS KABI-FK201812815

PATIENT
  Sex: Female

DRUGS (10)
  1. TOCOPHERYL ACETATE [Suspect]
     Active Substance: .ALPHA.-TOCOPHEROL ACETATE
     Indication: PARENTERAL NUTRITION
     Route: 065
     Dates: start: 201810
  2. AMINO ACIDS NOS [Suspect]
     Active Substance: AMINO ACIDS
     Indication: PARENTERAL NUTRITION
     Dosage: 20 ML PER BAG; WITHOUT VITAMIN K1
     Route: 065
     Dates: start: 201810
  3. SODIUM CHLORIDE (MANUFACTURER UNKNOWN) [Suspect]
     Active Substance: SODIUM CHLORIDE
     Indication: PARENTERAL NUTRITION
     Dosage: 41 ML PER BAG; WITHOUT VITAMIN K1
     Route: 065
  4. SMOFLIPID [Suspect]
     Active Substance: FISH OIL\MEDIUM-CHAIN TRIGLYCERIDES\OLIVE OIL\SOYBEAN OIL
     Indication: PARENTERAL NUTRITION
     Dosage: 200 ML PER BAG; WITH VITAMIN K1
     Route: 065
     Dates: start: 201810
  5. POTASSIUM CHLORIDE (MANUFACTURER UNKNOWN) [Suspect]
     Active Substance: POTASSIUM CHLORIDE
     Indication: PARENTERAL NUTRITION
     Dosage: 45 ML PER BAG; WITHOUT VITAMIN K1
     Route: 065
     Dates: start: 201810
  6. GLUCOSE (MANUFACTURER UNKNOWN) [Suspect]
     Active Substance: DEXTROSE
     Indication: PARENTERAL NUTRITION
     Dosage: 700 ML PER BAG; WITHOUT VITAMIN K1
     Route: 065
     Dates: start: 201810
  7. PHYTOMENADIONE [Suspect]
     Active Substance: PHYTONADIONE
     Indication: PARENTERAL NUTRITION
     Dosage: 1 ML PER BAG
     Route: 065
     Dates: start: 201810
  8. MAGNESIUM SULFATE. [Suspect]
     Active Substance: MAGNESIUM SULFATE
     Indication: PARENTERAL NUTRITION
     Dosage: 25 ML PER BAG; WITHOUT VITAMIN K1
     Route: 065
     Dates: start: 201810
  9. GLUCOSE 1-PHOSPHATE DISODIUM [Suspect]
     Active Substance: .ALPHA.-GLUCOSE-1-PHOSPHATE
     Indication: PARENTERAL NUTRITION
     Dosage: 91 ML PER BAG; WITHOUT VITAMIN K1
     Route: 065
     Dates: start: 201810
  10. SELENIUM [Suspect]
     Active Substance: SELENIUM
     Indication: PARENTERAL NUTRITION
     Dosage: 10 ML PER BAG; WITHOUT VITAMIN K1
     Route: 065
     Dates: start: 201810

REACTIONS (2)
  - Product use issue [Unknown]
  - Infection [Unknown]
